FAERS Safety Report 16502694 (Version 2)
Quarter: 2019Q3

REPORT INFORMATION
  Report Type: Spontaneous
  Country: US (occurrence: US)
  Receive Date: 20190701
  Receipt Date: 20190820
  Transmission Date: 20191004
  Serious: Yes (Other)
  Sender: FDA-Public Use
  Company Number: US-GLAXOSMITHKLINE-US2019116951

PATIENT
  Age: 69 Year
  Sex: Female
  Weight: 45.35 kg

DRUGS (5)
  1. COREG CR [Suspect]
     Active Substance: CARVEDILOL PHOSPHATE
     Indication: CARDIAC FAILURE
     Dosage: 20 MG, 1D
     Route: 048
     Dates: start: 20190801, end: 20190801
  2. COREG [Suspect]
     Active Substance: CARVEDILOL
     Dosage: 12.5 MG, QD
     Route: 048
  3. COREG [Suspect]
     Active Substance: CARVEDILOL
     Dosage: 25 MG, QD
     Route: 048
  4. CARVEDILOL. [Suspect]
     Active Substance: CARVEDILOL
     Indication: CORONARY ARTERY OCCLUSION
     Route: 048
  5. COREG [Suspect]
     Active Substance: CARVEDILOL
     Indication: CORONARY ARTERY OCCLUSION
     Dosage: 25 MG, BID
     Route: 048
     Dates: start: 2006

REACTIONS (15)
  - Syncope [Recovered/Resolved]
  - Hypotension [Recovered/Resolved]
  - Confusional state [Recovered/Resolved]
  - Feeling abnormal [Recovered/Resolved]
  - Dizziness [Recovered/Resolved]
  - Fear [Recovered/Resolved]
  - Decreased appetite [Recovered/Resolved]
  - Gait disturbance [Recovered/Resolved]
  - Product use in unapproved indication [Unknown]
  - Adverse drug reaction [Recovered/Resolved]
  - Peripheral coldness [Recovered/Resolved]
  - Hallucination [Recovered/Resolved]
  - Nausea [Recovered/Resolved]
  - Visual impairment [Recovered/Resolved]
  - Diarrhoea [Recovered/Resolved]

NARRATIVE: CASE EVENT DATE: 20190801
